FAERS Safety Report 6595422-7 (Version None)
Quarter: 2010Q1

REPORT INFORMATION
  Report Type: 
  Country: None (occurrence: None)
  Receive Date: 20100223
  Receipt Date: 20100217
  Transmission Date: 20100710
  Serious: Yes (Other)
  Sender: FDA-Public Use
  Company Number: US-BAYER-200919789NA

PATIENT
  Age: 39 Year
  Sex: Female

DRUGS (9)
  1. BETASERON [Suspect]
     Indication: RELAPSING-REMITTING MULTIPLE SCLEROSIS
     Dosage: TOTAL DAILY DOSE: 6 MIU
     Route: 058
     Dates: start: 20090430
  2. BETASERON [Suspect]
     Dosage: TOTAL DAILY DOSE: 8 MIU
     Route: 058
     Dates: end: 20100101
  3. ATIVAN [Concomitant]
     Indication: ANXIETY
  4. KLONOPIN [Concomitant]
     Indication: ANXIETY
  5. CYMBALTA [Concomitant]
     Indication: DEPRESSION
  6. GABAPENTIN [Concomitant]
     Indication: PAIN IN EXTREMITY
  7. GABAPENTIN [Concomitant]
     Dosage: TOTAL DAILY DOSE: 2400 MG
  8. VICODIN [Concomitant]
     Indication: PAIN IN EXTREMITY
  9. LEXAPRO [Concomitant]
     Indication: ANXIETY DISORDER

REACTIONS (40)
  - ANXIETY [None]
  - ANXIETY DISORDER [None]
  - BACK DISORDER [None]
  - BALANCE DISORDER [None]
  - BLOOD POTASSIUM DECREASED [None]
  - CARPAL TUNNEL SYNDROME [None]
  - DEPRESSION [None]
  - DIZZINESS [None]
  - DYSARTHRIA [None]
  - DYSPNOEA [None]
  - DYSSTASIA [None]
  - EAR INFECTION [None]
  - EMOTIONAL DISORDER [None]
  - FALL [None]
  - FATIGUE [None]
  - GAIT DISTURBANCE [None]
  - HALLUCINATION, AUDITORY [None]
  - HEADACHE [None]
  - HEPATIC ENZYME INCREASED [None]
  - HYPOAESTHESIA [None]
  - INJECTION SITE HAEMATOMA [None]
  - INJECTION SITE INDURATION [None]
  - INJECTION SITE PRURITUS [None]
  - INJECTION SITE VESICLES [None]
  - INSOMNIA [None]
  - MALAISE [None]
  - MEMORY IMPAIRMENT [None]
  - MENTAL DISORDER [None]
  - MOBILITY DECREASED [None]
  - MULTIPLE SCLEROSIS [None]
  - MUSCULAR WEAKNESS [None]
  - MUSCULOSKELETAL PAIN [None]
  - NECK PAIN [None]
  - PAIN IN EXTREMITY [None]
  - PANIC REACTION [None]
  - SPONDYLITIS [None]
  - TEARFULNESS [None]
  - THINKING ABNORMAL [None]
  - VERTIGO [None]
  - VISION BLURRED [None]
